FAERS Safety Report 5367418-4 (Version None)
Quarter: 2007Q2

REPORT INFORMATION
  Report Type: 
  Country: None (occurrence: None)
  Receive Date: 20070622
  Receipt Date: 20060711
  Transmission Date: 20071010
  Serious: No
  Sender: FDA-Public Use
  Company Number: US-ASTRAZENECA-2006UW14246

PATIENT
  Age: 56 Year
  Sex: Female
  Weight: 74.8 kg

DRUGS (1)
  1. PULMICORT [Suspect]
     Indication: BRONCHITIS
     Route: 055

REACTIONS (1)
  - MOUTH ULCERATION [None]
